FAERS Safety Report 9274923 (Version 2)
Quarter: 2013Q2

REPORT INFORMATION
  Report Type: Spontaneous
  Country: BR (occurrence: None)
  Receive Date: 20130429
  Receipt Date: 20130503
  Transmission Date: 20140414
  Serious: Yes (Hospitalization, Other)
  Sender: FDA-Public Use
  Company Number: AUR-APL-2013-03253

PATIENT
  Age: 86 Year
  Sex: Female

DRUGS (8)
  1. ATENOLOL (ATENOLOL) [Suspect]
     Indication: PRODUCT USED FOR UNKNOWN INDICATION
     Route: 048
  2. OMEPRAZOLE (OMEPRAZOLE) [Suspect]
     Indication: ABDOMINAL PAIN UPPER
     Route: 048
  3. ATACAND HCT [Suspect]
     Indication: BLOOD PRESSURE ABNORMAL
     Route: 048
     Dates: end: 201302
  4. CRESTOR (ROSUVASTATIN) [Suspect]
     Indication: PRODUCT USED FOR UNKNOWN INDICATION
  5. PURAN T4 (LECOTHYROXINE SODIUM) [Concomitant]
  6. MNIPRESS (PRAZOSIN HYDROCHLORIDE) [Concomitant]
  7. CELERBRATE (NIFEDIPINE) [Concomitant]
  8. PLAVIX (CLOPIDOGREL) [Concomitant]

REACTIONS (5)
  - Cerebral ischaemia [None]
  - Blood sodium decreased [None]
  - Blood potassium decreased [None]
  - Depression [None]
  - Syncope [None]
